FAERS Safety Report 6903721-1 (Version None)
Quarter: 2010Q3

REPORT INFORMATION
  Report Type: 
  Country: None (occurrence: None)
  Receive Date: 20100804
  Receipt Date: 20081120
  Transmission Date: 20110219
  Serious: No
  Sender: FDA-Public Use
  Company Number: US-PFIZER INC-2008098717

PATIENT
  Sex: Female
  Weight: 61.4 kg

DRUGS (2)
  1. LYRICA [Suspect]
     Dates: start: 20081113, end: 20081120
  2. NOVOLOG [Concomitant]

REACTIONS (3)
  - PRURITUS [None]
  - RASH [None]
  - URTICARIA [None]
